FAERS Safety Report 7475387-6 (Version None)
Quarter: 2011Q2

REPORT INFORMATION
  Report Type: 
  Country: None (occurrence: None)
  Receive Date: 20110512
  Receipt Date: 20110505
  Transmission Date: 20111010
  Serious: Yes (Other)
  Sender: FDA-Public Use
  Company Number: GB-B.I. PHARMACEUTICALS,INC./RIDGEFIELD-2011-UK-00460UK

PATIENT
  Age: 72 Year
  Sex: Female
  Weight: 70 kg

DRUGS (7)
  1. SENOKOT [Concomitant]
     Dosage: AS NECESSARY
     Route: 048
  2. VENTOLIN [Concomitant]
     Dosage: 1DF, 4/1DAYS
     Route: 055
  3. IRON [Concomitant]
     Dosage: AS NECESSARY
     Route: 048
  4. SERETIDE [Concomitant]
     Dosage: 1DF, 2/1DAYS
     Route: 055
  5. ACETAMINOPHEN [Concomitant]
     Dosage: AS NECESSARY
     Route: 048
  6. PRADAXA [Suspect]
     Indication: THROMBOSIS PROPHYLAXIS
     Dosage: 150 MG
     Route: 048
     Dates: start: 20110314, end: 20110321
  7. LACTULOSE [Concomitant]
     Dosage: AS NECESSARY
     Route: 048

REACTIONS (1)
  - PALPITATIONS [None]
